FAERS Safety Report 24703475 (Version 1)
Quarter: 2024Q4

REPORT INFORMATION
  Report Type: Spontaneous
  Country: US (occurrence: None)
  Receive Date: 20241205
  Receipt Date: 20241205
  Transmission Date: 20250115
  Serious: No
  Sender: Alvotech
  Company Number: US-ALVOTECHPMS-2024-ALVOTECHPMS-002637

PATIENT

DRUGS (1)
  1. SIMLANDI [Suspect]
     Active Substance: ADALIMUMAB-RYVK
     Indication: Product used for unknown indication
     Dosage: KIT
     Route: 065

REACTIONS (2)
  - Injection site urticaria [Unknown]
  - Product substitution issue [Unknown]
